FAERS Safety Report 21041110 (Version 1)
Quarter: 2022Q3

REPORT INFORMATION
  Report Type: Other
  Country: GB (occurrence: GB)
  Receive Date: 20220705
  Receipt Date: 20220705
  Transmission Date: 20221027
  Serious: Yes (Hospitalization)
  Sender: FDA-Public Use
  Company Number: GB-DEXPHARM-20220896

PATIENT
  Sex: Male

DRUGS (5)
  1. PRAMIPEXOLE [Concomitant]
     Active Substance: PRAMIPEXOLE
     Dosage: PRAMIPEXOL 0.18 MG
  2. VENLAFAXINE [Interacting]
     Active Substance: VENLAFAXINE HYDROCHLORIDE
     Dosage: VENLAFAXINE 150 MG
  3. HALOPERIDOL [Interacting]
     Active Substance: HALOPERIDOL
     Dosage: HALOPERIDOL 20 MG
  4. QUINAPRIL [Concomitant]
     Active Substance: QUINAPRIL
     Dosage: QUINAPRIL 20 MG
  5. RABEPRAZOLE [Concomitant]
     Active Substance: RABEPRAZOLE
     Dosage: RABEPRAZOLE 10 MG

REACTIONS (2)
  - Parkinsonism [Recovered/Resolved]
  - Drug interaction [Recovered/Resolved]
